FAERS Safety Report 8089552-0 (Version None)
Quarter: 2012Q1

REPORT INFORMATION
  Report Type: 
  Country: None (occurrence: None)
  Receive Date: 20120128
  Receipt Date: 20110617
  Transmission Date: 20120608
  Serious: No
  Sender: FDA-Public Use
  Company Number: US-ABBOTT-11P-163-0733520-00

PATIENT
  Sex: Female

DRUGS (4)
  1. HUMIRA [Suspect]
  2. LORATADINE [Concomitant]
     Indication: HYPERSENSITIVITY
     Dosage: AS REQUIRED
  3. HUMIRA [Suspect]
     Indication: PSORIASIS
     Dosage: DAY ONE
     Route: 058
     Dates: start: 20110607, end: 20110607
  4. IRON [Concomitant]
     Indication: MINERAL SUPPLEMENTATION

REACTIONS (3)
  - INJECTION SITE ERYTHEMA [None]
  - INJECTION SITE REACTION [None]
  - INJECTION SITE PAIN [None]
